FAERS Safety Report 17671438 (Version 1)
Quarter: 2020Q2

REPORT INFORMATION
  Report Type: Spontaneous
  Country: US (occurrence: US)
  Receive Date: 20200415
  Receipt Date: 20200415
  Transmission Date: 20200713
  Serious: No
  Sender: FDA-Public Use
  Company Number: US-ALKERMES INC.-ALK-2019-002154

PATIENT
  Age: 32 Year
  Sex: Male

DRUGS (2)
  1. VIVITROL [Suspect]
     Active Substance: NALTREXONE
     Indication: DRUG DEPENDENCE
     Dosage: 380 MG, QMO
     Route: 030
     Dates: start: 2017
  2. NALTREXONE [Suspect]
     Active Substance: NALTREXONE
     Indication: PRODUCT USED FOR UNKNOWN INDICATION
     Route: 048

REACTIONS (2)
  - Gastrointestinal disorder [Not Recovered/Not Resolved]
  - Abdominal pain upper [Not Recovered/Not Resolved]
